FAERS Safety Report 7941524-X (Version None)
Quarter: 2011Q4

REPORT INFORMATION
  Report Type: 
  Country: None (occurrence: None)
  Receive Date: 20111128
  Receipt Date: 20111120
  Transmission Date: 20120403
  Serious: Yes (Hospitalization)
  Sender: FDA-Public Use
  Company Number: US-ASTELLAS-2011US007332

PATIENT
  Sex: Male
  Weight: 55 kg

DRUGS (6)
  1. TACROLIMUS [Suspect]
     Indication: DERMATITIS ATOPIC
     Dosage: 0.03 %, BID
     Route: 061
     Dates: start: 20010530
  2. FLOVENT [Concomitant]
     Indication: ASTHMA
     Dosage: 110 MCG 2 PUFFS BID
     Route: 065
  3. FLONASE [Concomitant]
     Indication: RHINITIS ALLERGIC
     Dosage: 1 DF, UID/QD
     Route: 065
  4. CLINDAMYCIN [Concomitant]
     Indication: ABSCESS
     Dosage: 300 MG, Q8 HOURS
     Route: 065
     Dates: start: 20110411
  5. TRIAMCINOLONE [Concomitant]
     Indication: ECZEMA
     Dosage: 0.1 %, BID
     Route: 065
  6. ALBUTEROL [Concomitant]
     Indication: ASTHMA
     Dosage: 2 PUFFS Q 4-6 HOURS
     Route: 065

REACTIONS (1)
  - ASTHMA [None]
